FAERS Safety Report 9583848 (Version 2)
Quarter: 2013Q4

REPORT INFORMATION
  Report Type: Spontaneous
  Country: US (occurrence: US)
  Receive Date: 20131002
  Receipt Date: 20131002
  Transmission Date: 20140711
  Serious: No
  Sender: FDA-Public Use
  Company Number: US-AMGEN-USASP2013045077

PATIENT
  Age: 46 Year
  Sex: Male
  Weight: 86.17 kg

DRUGS (3)
  1. ENBREL [Suspect]
     Indication: PSORIASIS
     Dosage: 50 MG, QWK
     Route: 058
     Dates: start: 201212, end: 201306
  2. LISINOPRIL [Concomitant]
     Dosage: 20 MG, UNK
  3. PRILOSEC                           /00661201/ [Concomitant]
     Dosage: 10 MG, UNK

REACTIONS (2)
  - Drug ineffective [Unknown]
  - Psoriasis [Not Recovered/Not Resolved]
